FAERS Safety Report 7797194-7 (Version None)
Quarter: 2011Q4

REPORT INFORMATION
  Report Type: 
  Country: None (occurrence: None)
  Receive Date: 20111005
  Receipt Date: 20110928
  Transmission Date: 20120403
  Serious: Yes (Other)
  Sender: FDA-Public Use
  Company Number: JP-PFIZER INC-2011231774

PATIENT
  Age: 24 Year
  Sex: Male
  Weight: 7.5 kg

DRUGS (1)
  1. BENEFIX [Suspect]
     Indication: FACTOR IX DEFICIENCY
     Dosage: 2000 IU, UNK
     Dates: start: 20101025, end: 20110424

REACTIONS (1)
  - DRUG INEFFECTIVE [None]
